FAERS Safety Report 15127576 (Version 5)
Quarter: 2019Q1

REPORT INFORMATION
  Report Type: Report from Study
  Country: None (occurrence: TR)
  Receive Date: 20180710
  Receipt Date: 20190109
  Transmission Date: 20190417
  Serious: Yes (Hospitalization)
  Sender: FDA-Public Use
  Company Number: TR-ABBVIE-18K-161-2302847-00

PATIENT
  Age: 73 Year
  Sex: Female

DRUGS (12)
  1. APIKOBAL [Concomitant]
     Active Substance: CYANOCOBALAMIN\PYRIDOXINE HYDROCHLORIDE\THIAMINE
     Indication: VITAMIN SUPPLEMENTATION
     Route: 048
     Dates: start: 20180208
  2. MOTILIUM [Concomitant]
     Active Substance: DOMPERIDONE
     Indication: CONSTIPATION
     Route: 048
     Dates: start: 2017
  3. BEKUNIS [Concomitant]
     Indication: CONSTIPATION
     Route: 048
  4. SEROQUEL [Concomitant]
     Active Substance: QUETIAPINE FUMARATE
     Indication: SLEEP DISORDER
     Route: 048
     Dates: start: 2016
  5. EXELON PATCH [Concomitant]
     Active Substance: RIVASTIGMINE
     Indication: MEMORY IMPAIRMENT
     Route: 062
     Dates: start: 20180208
  6. DUODOPA [Suspect]
     Active Substance: CARBIDOPA\LEVODOPA
     Dosage: MORNING DOSE: 6.60 ML?CONTINUOUS DOSE: 3.90 ML?EXTRA DOSE: 1.00 ML
     Route: 050
     Dates: start: 20180803
  7. BELOC [METOPROLOL SUCCINATE] [Concomitant]
     Active Substance: METOPROLOL SUCCINATE
     Indication: PRODUCT USED FOR UNKNOWN INDICATION
     Route: 048
     Dates: start: 2017
  8. CIPRALEX [Concomitant]
     Active Substance: ESCITALOPRAM OXALATE
     Indication: SEDATIVE THERAPY
     Route: 048
     Dates: start: 2016
  9. DUODOPA [Suspect]
     Active Substance: CARBIDOPA\LEVODOPA
     Dosage: MORNING DOSE: 7.20 ML?CONTINUOUS DOSE: 4.20 ML?EXTRA DOSE: 1.00 ML
     Route: 050
     Dates: start: 20180803
  10. DUODOPA [Suspect]
     Active Substance: CARBIDOPA\LEVODOPA
     Indication: PARKINSON^S DISEASE
     Dosage: MD: 6.60 ML, CD: 3.90 ML, ED: 1.00 ML
     Route: 050
     Dates: start: 20170327
  11. CORASPIN [Concomitant]
     Active Substance: ASPIRIN
     Indication: ANTICOAGULANT THERAPY
     Route: 048
     Dates: start: 201703
  12. MADOPAR HBS [Concomitant]
     Active Substance: BENSERAZIDE HYDROCHLORIDE\LEVODOPA
     Indication: PARKINSON^S DISEASE
     Dosage: 1X2
     Route: 048
     Dates: start: 20180208

REACTIONS (6)
  - Asthenia [Recovered/Resolved]
  - Dislocation of vertebra [Not Recovered/Not Resolved]
  - Bradykinesia [Recovered/Resolved]
  - Spinal cord oedema [Recovered/Resolved]
  - Fall [Recovered/Resolved]
  - Pelvic fracture [Recovered/Resolved]

NARRATIVE: CASE EVENT DATE: 2018
